FAERS Safety Report 4531092-7 (Version None)
Quarter: 2004Q4

REPORT INFORMATION
  Report Type: 
  Country: None (occurrence: None)
  Receive Date: 20041215
  Receipt Date: 20041206
  Transmission Date: 20050328
  Serious: No
  Sender: FDA-Public Use
  Company Number: 2004PK02074

PATIENT
  Age: 49 Year
  Sex: Male
  Weight: 92 kg

DRUGS (2)
  1. SELOKEN RETARD [Suspect]
     Indication: HYPERTENSION
     Dosage: 95 MG DAILY PO
     Route: 048
     Dates: start: 19990101, end: 20040701
  2. SELOKEN RETARD [Suspect]
     Indication: TACHYCARDIA PAROXYSMAL
     Dosage: 95 MG DAILY PO
     Route: 048
     Dates: start: 19990101, end: 20040701

REACTIONS (3)
  - MUSCLE CRAMP [None]
  - PANIC ATTACK [None]
  - TRANSIENT ISCHAEMIC ATTACK [None]
